FAERS Safety Report 8309747-8 (Version None)
Quarter: 2012Q2

REPORT INFORMATION
  Report Type: 
  Country: None (occurrence: None)
  Receive Date: 20120425
  Receipt Date: 20120413
  Transmission Date: 20120825
  Serious: Yes (Hospitalization, Other)
  Sender: FDA-Public Use
  Company Number: PHHY2010US43376

PATIENT
  Sex: Female

DRUGS (1)
  1. NEORAL [Suspect]
     Indication: RENAL TRANSPLANT
     Dosage: 75 MG, BID
     Route: 048
     Dates: start: 20111104

REACTIONS (6)
  - ACCIDENT [None]
  - HALLUCINATION [None]
  - HYPERHIDROSIS [None]
  - TREMOR [None]
  - ESCHERICHIA INFECTION [None]
  - LOWER LIMB FRACTURE [None]
